FAERS Safety Report 9880539 (Version 1)
Quarter: 2014Q1

REPORT INFORMATION
  Report Type: Spontaneous
  Country: CA (occurrence: CA)
  Receive Date: 20140207
  Receipt Date: 20140207
  Transmission Date: 20141002
  Serious: Yes (Life-Threatening, Other)
  Sender: FDA-Public Use
  Company Number: CA-BEH-2014040370

PATIENT
  Age: 76 Year
  Sex: Female

DRUGS (8)
  1. ALBUREX 5% [Suspect]
     Route: 042
     Dates: start: 20131212, end: 20131212
  2. ALBUREX 5% [Suspect]
     Route: 042
     Dates: start: 20131212, end: 20131212
  3. LOPRESSOR [Concomitant]
     Route: 048
     Dates: start: 20131212
  4. NORVASC [Concomitant]
     Route: 048
     Dates: start: 20131212
  5. ASA [Concomitant]
     Route: 048
     Dates: start: 20131212
  6. PANTOLOC [Concomitant]
     Route: 048
     Dates: start: 20131212
  7. DECADRON [Concomitant]
     Route: 048
     Dates: start: 20131212
  8. ALLOPURINOL [Concomitant]
     Route: 048
     Dates: start: 20131212

REACTIONS (11)
  - Cardio-respiratory arrest [Recovered/Resolved]
  - Presyncope [Recovered/Resolved]
  - Pulse absent [Recovered/Resolved]
  - Hypotension [Recovered/Resolved]
  - Chest pain [Recovered/Resolved]
  - Dizziness [Recovered/Resolved]
  - Hyperhidrosis [Recovered/Resolved]
  - Nausea [Recovered/Resolved]
  - Dyspnoea [Recovered/Resolved]
  - Hypocalcaemia [Recovered/Resolved]
  - Arrhythmia [Recovered/Resolved]
